FAERS Safety Report 10452355 (Version 1)
Quarter: 2014Q3

REPORT INFORMATION
  Report Type: Spontaneous
  Country: AU (occurrence: AU)
  Receive Date: 20140915
  Receipt Date: 20140915
  Transmission Date: 20150326
  Serious: Yes (Other)
  Sender: FDA-Public Use
  Company Number: AU-RANBAXY-2014R3-85279

PATIENT
  Age: 37 Year
  Sex: Male

DRUGS (1)
  1. CANDESARTAN HCTZ RBX 32/12.5 [Suspect]
     Active Substance: CANDESARTAN CILEXETIL\HYDROCHLOROTHIAZIDE
     Indication: PRODUCT USED FOR UNKNOWN INDICATION
     Dosage: UNK
     Route: 065

REACTIONS (4)
  - Musculoskeletal pain [Unknown]
  - Paraesthesia [Unknown]
  - Hypertension [Unknown]
  - Tinnitus [Unknown]
